FAERS Safety Report 6977229-1 (Version None)
Quarter: 2010Q3

REPORT INFORMATION
  Report Type: 
  Country: None (occurrence: None)
  Receive Date: 20100910
  Receipt Date: 20100831
  Transmission Date: 20110219
  Serious: Yes (Hospitalization, Other)
  Sender: FDA-Public Use
  Company Number: US-WYE-H17265910

PATIENT
  Sex: Male
  Weight: 99.43 kg

DRUGS (4)
  1. EFFEXOR XR [Suspect]
     Indication: DEPRESSION
     Route: 048
     Dates: start: 20040101
  2. CLONAZEPAM [Concomitant]
     Indication: ANXIETY
     Dosage: 1 MG
  3. CLONAZEPAM [Concomitant]
     Indication: INSOMNIA
  4. COUMADIN [Interacting]
     Indication: PROPHYLAXIS
     Route: 048
     Dates: start: 20100101

REACTIONS (14)
  - ABNORMAL BEHAVIOUR [None]
  - ANGER [None]
  - ANXIETY [None]
  - ATRIAL FIBRILLATION [None]
  - CARDIAC FAILURE CONGESTIVE [None]
  - CEREBROVASCULAR ACCIDENT [None]
  - CONFUSIONAL STATE [None]
  - DENTAL CARE [None]
  - DRUG INTERACTION [None]
  - DYSPNOEA [None]
  - FALL [None]
  - IRRITABILITY [None]
  - LACERATION [None]
  - THROMBOSIS [None]
